FAERS Safety Report 23630010 (Version 7)
Quarter: 2024Q4

REPORT INFORMATION
  Report Type: Spontaneous
  Country: IE (occurrence: IE)
  Receive Date: 20240314
  Receipt Date: 20241213
  Transmission Date: 20250114
  Serious: Yes (Hospitalization, Other)
  Sender: AUROBINDO
  Company Number: IE-MYLANLABS-2023M1026450

PATIENT
  Age: 68 Year
  Sex: Male

DRUGS (13)
  1. OLANZAPINE [Interacting]
     Active Substance: OLANZAPINE
     Indication: Product used for unknown indication
     Dosage: UNK
     Route: 065
  2. AMISULPRIDE [Interacting]
     Active Substance: AMISULPRIDE
     Indication: Schizophrenia
     Dosage: 200 MILLIGRAM
     Route: 065
  3. CLOZARIL [Interacting]
     Active Substance: CLOZAPINE
     Indication: Schizophrenia
     Dosage: 450 MILLIGRAM
     Route: 048
     Dates: start: 20051208, end: 20240201
  4. FLUCONAZOLE [Interacting]
     Active Substance: FLUCONAZOLE
     Indication: Product used for unknown indication
     Dosage: UNK
     Route: 065
     Dates: start: 20240104
  5. FLUCONAZOLE [Interacting]
     Active Substance: FLUCONAZOLE
     Dosage: UNK
     Route: 065
     Dates: start: 202401
  6. FLUCONAZOLE [Interacting]
     Active Substance: FLUCONAZOLE
     Dosage: 100 MILLIGRAM
     Route: 065
     Dates: start: 20240104
  7. FLUCONAZOLE [Interacting]
     Active Substance: FLUCONAZOLE
     Dosage: 200 MILLIGRAM
     Route: 065
     Dates: start: 20240104, end: 20240114
  8. FLUCONAZOLE [Interacting]
     Active Substance: FLUCONAZOLE
     Indication: Product used for unknown indication
     Dosage: 100 MILLIGRAM
     Route: 065
     Dates: start: 20240104, end: 20240114
  9. PANTOPRAZOLE [Suspect]
     Active Substance: PANTOPRAZOLE
     Indication: Product used for unknown indication
     Dosage: UNK
     Route: 065
  10. ROSUVASTATIN [Interacting]
     Active Substance: ROSUVASTATIN
     Indication: Product used for unknown indication
     Dosage: UNK
     Route: 065
  11. SERTRALINE [Interacting]
     Active Substance: SERTRALINE HYDROCHLORIDE
     Indication: Product used for unknown indication
     Dosage: UNK
     Route: 065
  12. SULFAMETHOXAZOLE\TRIMETHOPRIM [Suspect]
     Active Substance: SULFAMETHOXAZOLE\TRIMETHOPRIM
     Indication: Prophylaxis
     Dosage: UNK
     Route: 065
  13. VALACYCLOVIR [Interacting]
     Active Substance: VALACYCLOVIR HYDROCHLORIDE
     Indication: Product used for unknown indication
     Dosage: UNK
     Route: 065

REACTIONS (10)
  - Schizophrenia [Not Recovered/Not Resolved]
  - White blood cell count increased [Recovered/Resolved]
  - Neutrophil count increased [Recovered/Resolved]
  - Lymphocyte count decreased [Unknown]
  - Lymphoma [Unknown]
  - Antipsychotic drug level increased [Unknown]
  - Leukopenia [Recovering/Resolving]
  - Neutropenia [Recovered/Resolved]
  - Hospitalisation [Recovered/Resolved]
  - Drug interaction [Unknown]

NARRATIVE: CASE EVENT DATE: 20230308
